FAERS Safety Report 14736950 (Version 3)
Quarter: 2018Q3

REPORT INFORMATION
  Report Type: Spontaneous
  Country: JP (occurrence: JP)
  Receive Date: 20180409
  Receipt Date: 20180823
  Transmission Date: 20181010
  Serious: Yes (Other)
  Sender: FDA-Public Use
  Company Number: JP-PFIZER INC-2018138554

PATIENT
  Age: 70 Year
  Sex: Male
  Weight: 57 kg

DRUGS (2)
  1. PREDNISOLONE. [Suspect]
     Active Substance: PREDNISOLONE
     Indication: TOLOSA-HUNT SYNDROME
     Dosage: 60 MG, DAILY
     Route: 048
  2. METHYLPREDNISOLONE SODIUM SUCCINATE. [Suspect]
     Active Substance: METHYLPREDNISOLONE SODIUM SUCCINATE
     Indication: TOLOSA-HUNT SYNDROME
     Dosage: 1000 MG, DAILY
     Route: 042

REACTIONS (2)
  - Hiccups [Recovered/Resolved]
  - Delirium [Recovered/Resolved]
